FAERS Safety Report 7461981-5 (Version None)
Quarter: 2011Q2

REPORT INFORMATION
  Report Type: 
  Country: None (occurrence: None)
  Receive Date: 20110506
  Receipt Date: 20110502
  Transmission Date: 20111010
  Serious: Yes (Death)
  Sender: FDA-Public Use
  Company Number: PHHO2011DE07544

PATIENT
  Sex: Female
  Weight: 50.5 kg

DRUGS (6)
  1. STI571/CGP57148B [Suspect]
     Dosage: 400 MG, QD
     Route: 048
     Dates: start: 20110412
  2. RAMIPRIL [Concomitant]
  3. MARCUMAR [Concomitant]
  4. STI571/CGP57148B [Suspect]
     Indication: PULMONARY ARTERIAL HYPERTENSION
     Dosage: 200 MG, QD
     Route: 048
     Dates: start: 20110330, end: 20110411
  5. AMBRISENTAN [Concomitant]
  6. REVATIO [Concomitant]

REACTIONS (1)
  - DEATH [None]
